FAERS Safety Report 15711223 (Version 3)
Quarter: 2021Q2

REPORT INFORMATION
  Report Type: Spontaneous
  Country: US (occurrence: US)
  Receive Date: 20181211
  Receipt Date: 20210409
  Transmission Date: 20210716
  Serious: Yes (Other)
  Sender: FDA-Public Use
  Company Number: PHEH2018US052097

PATIENT
  Sex: Male

DRUGS (1)
  1. TASIGNA [Suspect]
     Active Substance: NILOTINIB
     Indication: CHRONIC MYELOID LEUKAEMIA
     Dosage: 1 DF, BID
     Route: 048
     Dates: start: 20080331, end: 201803

REACTIONS (20)
  - Back pain [Unknown]
  - Vision blurred [Unknown]
  - Thrombosis [Unknown]
  - Anxiety [Unknown]
  - Pain [Unknown]
  - Carotid artery disease [Unknown]
  - Peripheral arterial occlusive disease [Unknown]
  - Ulcer [Unknown]
  - Arthritis [Unknown]
  - Folliculitis [Unknown]
  - Upper respiratory tract infection [Unknown]
  - Carotid arteriosclerosis [Unknown]
  - Peripheral vascular disorder [Unknown]
  - Emotional distress [Unknown]
  - Myocardial infarction [Unknown]
  - Insomnia [Unknown]
  - Coronary artery disease [Unknown]
  - Sleep apnoea syndrome [Unknown]
  - Injury [Unknown]
  - Arteriosclerosis [Unknown]

NARRATIVE: CASE EVENT DATE: 2011
